FAERS Safety Report 4493250-X (Version None)
Quarter: 2004Q4

REPORT INFORMATION
  Report Type: 
  Country: None (occurrence: None)
  Receive Date: 20041029
  Receipt Date: 20041014
  Transmission Date: 20050328
  Serious: Yes (Other)
  Sender: FDA-Public Use
  Company Number: B0348151A

PATIENT
  Age: 6 Year
  Sex: Male

DRUGS (4)
  1. HYCAMTIN [Suspect]
     Indication: NEPHROBLASTOMA
     Dosage: .75 MG/M2/ CYCLIC / INTRAVENOUS
     Route: 042
  2. ONDANSETRON HCL [Concomitant]
  3. CYCLOPHOSPHAMIDE [Concomitant]
  4. FILGRASTIM [Concomitant]

REACTIONS (7)
  - CENTRAL LINE INFECTION [None]
  - HAEMODIALYSIS [None]
  - LIVER DISORDER [None]
  - NEPHROBLASTOMA [None]
  - NEUTROPENIA [None]
  - RECURRENT CANCER [None]
  - THROMBOCYTOPENIA [None]
